FAERS Safety Report 17801502 (Version 1)
Quarter: 2020Q2

REPORT INFORMATION
  Report Type: Spontaneous
  Country: JP (occurrence: JP)
  Receive Date: 20200519
  Receipt Date: 20200519
  Transmission Date: 20200714
  Serious: Yes (Hospitalization, Other)
  Sender: FDA-Public Use
  Company Number: NVSC2020JP133442

PATIENT
  Age: 56 Year
  Sex: Female

DRUGS (6)
  1. METHYLPREDNISOLONE. [Suspect]
     Active Substance: METHYLPREDNISOLONE
     Indication: INTERSTITIAL LUNG DISEASE
  2. PREDNISOLONE. [Suspect]
     Active Substance: PREDNISOLONE
     Indication: DERMATOMYOSITIS
     Dosage: 40 MG, QD
     Route: 065
  3. TACROLIMUS. [Suspect]
     Active Substance: TACROLIMUS
     Indication: DERMATOMYOSITIS
     Dosage: 2 MG, QD
     Route: 065
  4. TACROLIMUS. [Suspect]
     Active Substance: TACROLIMUS
     Indication: INTERSTITIAL LUNG DISEASE
  5. PREDNISOLONE. [Suspect]
     Active Substance: PREDNISOLONE
     Indication: INTERSTITIAL LUNG DISEASE
  6. METHYLPREDNISOLONE. [Suspect]
     Active Substance: METHYLPREDNISOLONE
     Indication: DERMATOMYOSITIS
     Dosage: 1000 MG(FOR 3 DAYS)
     Route: 065
     Dates: start: 201710

REACTIONS (3)
  - Haemophagocytic lymphohistiocytosis [Recovering/Resolving]
  - Product use in unapproved indication [Unknown]
  - Condition aggravated [Recovering/Resolving]

NARRATIVE: CASE EVENT DATE: 201711
